FAERS Safety Report 18974458 (Version 1)
Quarter: 2021Q1

REPORT INFORMATION
  Report Type: Spontaneous
  Country: FR (occurrence: FR)
  Receive Date: 20210305
  Receipt Date: 20210305
  Transmission Date: 20210420
  Serious: Yes (Hospitalization)
  Sender: FDA-Public Use
  Company Number: FR-009507513-2103FRA000313

PATIENT
  Age: 36 Year
  Sex: Male

DRUGS (1)
  1. KEYTRUDA [Suspect]
     Active Substance: PEMBROLIZUMAB
     Indication: NEUROENDOCRINE CARCINOMA
     Route: 041
     Dates: start: 20201008, end: 20201210

REACTIONS (3)
  - Dyspnoea [Not Recovered/Not Resolved]
  - Ejection fraction decreased [Not Recovered/Not Resolved]
  - Troponin T increased [Not Recovered/Not Resolved]

NARRATIVE: CASE EVENT DATE: 202012
